FAERS Safety Report 4759209-X (Version None)
Quarter: 2005Q3

REPORT INFORMATION
  Report Type: 
  Country: None (occurrence: None)
  Receive Date: 20050831
  Receipt Date: 20050427
  Transmission Date: 20060218
  Serious: Yes (Other)
  Sender: FDA-Public Use
  Company Number: 200507187

PATIENT
  Sex: Male

DRUGS (1)
  1. DYSPORT (BOTULINUM TOXIN TYPE A) [Suspect]
     Indication: MULTIPLE SYSTEM ATROPHY
     Dosage: UNITS

REACTIONS (1)
  - BOTULISM [None]
